FAERS Safety Report 25393182 (Version 3)
Quarter: 2025Q3

REPORT INFORMATION
  Report Type: Spontaneous
  Country: US (occurrence: US)
  Receive Date: 20250604
  Receipt Date: 20250714
  Transmission Date: 20251020
  Serious: No
  Sender: SANOFI AVENTIS
  Company Number: US-SA-2025SA158083

PATIENT
  Age: 76 Year
  Sex: Female

DRUGS (14)
  1. DUPIXENT [Suspect]
     Active Substance: DUPILUMAB
     Indication: Dermatitis atopic
     Dosage: 300 MG, QOW
     Route: 058
     Dates: end: 2025
  2. DUPIXENT [Suspect]
     Active Substance: DUPILUMAB
     Indication: Gastritis
  3. LASIX [Concomitant]
     Active Substance: FUROSEMIDE
  4. HYDROCODONE [Concomitant]
     Active Substance: HYDROCODONE
  5. SUMATRIPTAN [Concomitant]
     Active Substance: SUMATRIPTAN
  6. NYSTATIN [Concomitant]
     Active Substance: NYSTATIN
  7. SUMATRIPTAN [Concomitant]
     Active Substance: SUMATRIPTAN
  8. FAMOTIDINE [Concomitant]
     Active Substance: FAMOTIDINE
  9. DICYCLOMINE [Concomitant]
     Active Substance: DICYCLOMINE HYDROCHLORIDE
  10. GABAPENTIN [Concomitant]
     Active Substance: GABAPENTIN
  11. FLUTICASONE [Concomitant]
     Active Substance: FLUTICASONE
  12. CORTISONE [Concomitant]
     Active Substance: CORTISONE
  13. CARISOPRODOL [Concomitant]
     Active Substance: CARISOPRODOL
  14. CHLORDIAZEPOXIDE [Concomitant]
     Active Substance: CHLORDIAZEPOXIDE

REACTIONS (7)
  - Vulvovaginal dryness [Unknown]
  - Joint swelling [Unknown]
  - Erythema [Unknown]
  - Headache [Not Recovered/Not Resolved]
  - Myalgia [Not Recovered/Not Resolved]
  - Arthralgia [Unknown]
  - Product use in unapproved indication [Unknown]
